FAERS Safety Report 17430964 (Version 1)
Quarter: 2020Q1

REPORT INFORMATION
  Report Type: Spontaneous
  Country: US (occurrence: US)
  Receive Date: 20200217
  Receipt Date: 20200217
  Transmission Date: 20200409
  Serious: Yes (Other)
  Sender: FDA-Public Use
  Company Number: None

PATIENT
  Age: 51 Year
  Sex: Male
  Weight: 71.1 kg

DRUGS (4)
  1. MAG CITRATE [Concomitant]
  2. LOSARTAN POTASSIUM 50 MG TAB [Suspect]
     Active Substance: LOSARTAN POTASSIUM
     Indication: HYPERTENSION
     Dosage: ?          QUANTITY:1 TABLET(S);?
     Route: 048
     Dates: start: 20191115, end: 20191231
  3. VITAMIN D [Concomitant]
     Active Substance: VITAMIN D NOS
  4. SAW PALMETTO [Concomitant]
     Active Substance: HERBALS\SAW PALMETTO

REACTIONS (3)
  - Product substitution issue [None]
  - Hypertension [None]
  - Drug ineffective [None]

NARRATIVE: CASE EVENT DATE: 20191224
